FAERS Safety Report 5574836-8 (Version None)
Quarter: 2007Q4

REPORT INFORMATION
  Report Type: 
  Country: None (occurrence: None)
  Receive Date: 20071227
  Receipt Date: 20071221
  Transmission Date: 20080405
  Serious: Yes (Death, Hospitalization)
  Sender: FDA-Public Use
  Company Number: US-BRISTOL-MYERS SQUIBB COMPANY-14023097

PATIENT
  Age: 59 Year
  Sex: Male
  Weight: 85 kg

DRUGS (3)
  1. IXEMPRA [Suspect]
     Indication: PROSTATE CANCER
     Route: 042
     Dates: start: 20071108, end: 20071108
  2. MITOXANTRONE HCL [Suspect]
     Indication: PROSTATE CANCER
     Route: 042
     Dates: start: 20071108, end: 20071108
  3. PREDNISONE TAB [Suspect]
     Indication: PROSTATE CANCER
     Route: 048
     Dates: start: 20071108, end: 20071115

REACTIONS (8)
  - ACUTE RESPIRATORY DISTRESS SYNDROME [None]
  - ANAEMIA [None]
  - CARDIO-RESPIRATORY ARREST [None]
  - FEBRILE NEUTROPENIA [None]
  - HYPOCALCAEMIA [None]
  - HYPOKALAEMIA [None]
  - PROSTATE INFECTION [None]
  - RENAL FAILURE [None]
